FAERS Safety Report 17858416 (Version 2)
Quarter: 2020Q2

REPORT INFORMATION
  Report Type: Report from Study
  Country: None (occurrence: US)
  Receive Date: 20200604
  Receipt Date: 20200605
  Transmission Date: 20200714
  Serious: No
  Sender: FDA-Public Use
  Company Number: US-US WORLDMEDS, LLC-USW201908-001486

PATIENT
  Sex: Female

DRUGS (1)
  1. APOKYN [Suspect]
     Active Substance: APOMORPHINE HYDROCHLORIDE
     Indication: PARKINSON^S DISEASE
     Dosage: TITRATE BY 0.1 ML EVERY FEW DAYS UP TO EFFECTIVE MAXIMUM RECOMMENDED

REACTIONS (3)
  - Vomiting [Unknown]
  - Adverse event [Unknown]
  - Drug ineffective [Unknown]
